FAERS Safety Report 8505073-2 (Version None)
Quarter: 2012Q3

REPORT INFORMATION
  Report Type: 
  Country: None (occurrence: None)
  Receive Date: 20120702
  Receipt Date: 20120607
  Transmission Date: 20120928
  Serious: Yes (Hospitalization, Other)
  Sender: FDA-Public Use
  Company Number: JPI-P-012632

PATIENT
  Age: 41 Year
  Sex: Male
  Weight: 74.8435 kg

DRUGS (6)
  1. METHYLPHENIDATE [Concomitant]
  2. NORTRIPTYLINE HCL [Concomitant]
  3. ACETYLSALICYLIC ACID SRT [Concomitant]
  4. LAMOTRIGINE [Concomitant]
  5. XYREM [Suspect]
     Indication: NARCOLEPSY
     Dosage: 6 GM (3 GM, 2 IN 1 D), ORAL 3 GM (3 GM, 1 IN 1 D), ORAL 9 GM, (4.5 GM, 2 IN 1 D),
     Route: 048
     Dates: start: 20100603
  6. ALPRAZOLAM [Concomitant]

REACTIONS (4)
  - DIZZINESS [None]
  - AORTIC ANEURYSM [None]
  - HYPOAESTHESIA [None]
  - PARAESTHESIA [None]
